FAERS Safety Report 7419429-2 (Version None)
Quarter: 2011Q2

REPORT INFORMATION
  Report Type: 
  Country: None (occurrence: None)
  Receive Date: 20110417
  Receipt Date: 20110404
  Transmission Date: 20111010
  Serious: Yes (Hospitalization)
  Sender: FDA-Public Use
  Company Number: FR-MYLANLABS-2011S1007258

PATIENT
  Age: 51 Year
  Sex: Male

DRUGS (8)
  1. ASPIRIN [Concomitant]
     Route: 065
  2. RAMIPRIL [Concomitant]
     Route: 065
  3. TRUVADA [Concomitant]
     Indication: PROPHYLAXIS AGAINST HIV INFECTION
     Dosage: TENOFOVIR DISOPROXIL FUMARATE 245MG AND EMTRICITABINE 200MG
     Route: 065
  4. LACIDIPINE [Interacting]
     Route: 065
  5. METOPROLOL [Suspect]
     Route: 065
  6. LEVOTHYROXINE SODIUM [Concomitant]
     Route: 065
  7. ROSUVASTATIN [Concomitant]
     Route: 065
  8. KALETRA                            /01506501/ [Interacting]
     Indication: PROPHYLAXIS AGAINST HIV INFECTION
     Dosage: LOPINAVIR 400MG AND RITONAVIR 100MG
     Route: 065

REACTIONS (4)
  - DRUG INTERACTION [None]
  - BRADYCARDIA [None]
  - ATRIOVENTRICULAR BLOCK COMPLETE [None]
  - HYPOTENSION [None]
